FAERS Safety Report 8521849-X (Version None)
Quarter: 2012Q3

REPORT INFORMATION
  Report Type: 
  Country: None (occurrence: None)
  Receive Date: 20120719
  Receipt Date: 20120430
  Transmission Date: 20120928
  Serious: Yes (Hospitalization, Other)
  Sender: FDA-Public Use
  Company Number: US-BRISTOL-MYERS SQUIBB COMPANY-16559312

PATIENT
  Age: 54 Year
  Sex: Female

DRUGS (1)
  1. YERVOY [Suspect]
     Dosage: 1 TREATMENT

REACTIONS (3)
  - NAUSEA [None]
  - CENTRAL NERVOUS SYSTEM LESION [None]
  - VOMITING [None]
